FAERS Safety Report 13531285 (Version 3)
Quarter: 2017Q3

REPORT INFORMATION
  Report Type: Spontaneous
  Country: US (occurrence: US)
  Receive Date: 20170510
  Receipt Date: 20170707
  Transmission Date: 20171127
  Serious: No
  Sender: FDA-Public Use
  Company Number: US-PFIZER INC-2017200810

PATIENT
  Age: 5 Year
  Sex: Male
  Weight: 19.5 kg

DRUGS (3)
  1. QUILLIVANT XR [Suspect]
     Active Substance: METHYLPHENIDATE HYDROCHLORIDE
     Indication: TIC
     Dosage: 2.5 ML, 1X/DAY
     Route: 048
     Dates: start: 20170404, end: 20170414
  2. QUILLIVANT XR [Suspect]
     Active Substance: METHYLPHENIDATE HYDROCHLORIDE
     Indication: ABNORMAL BEHAVIOUR
  3. QUILLIVANT XR [Suspect]
     Active Substance: METHYLPHENIDATE HYDROCHLORIDE
     Indication: ATTENTION DEFICIT/HYPERACTIVITY DISORDER
     Dosage: 2 ML, 1X/DAY
     Route: 048

REACTIONS (11)
  - Product use issue [Unknown]
  - Condition aggravated [Recovered/Resolved]
  - Screaming [Unknown]
  - Paranoia [Recovered/Resolved]
  - Tic [Recovered/Resolved]
  - Personality change [Recovered/Resolved]
  - Erythema [Unknown]
  - Abnormal behaviour [Recovered/Resolved]
  - Intentional product misuse [Unknown]
  - Psychomotor hyperactivity [Recovered/Resolved]
  - Irritability [Recovered/Resolved]

NARRATIVE: CASE EVENT DATE: 2017
